FAERS Safety Report 19513922 (Version 2)
Quarter: 2021Q3

REPORT INFORMATION
  Report Type: Spontaneous
  Country: US (occurrence: US)
  Receive Date: 20210709
  Receipt Date: 20210714
  Transmission Date: 20211014
  Serious: No
  Sender: FDA-Public Use
  Company Number: US-ORGANON-O2106USA002525

PATIENT
  Age: 74 Year
  Sex: Female

DRUGS (6)
  1. ASMANEX [Suspect]
     Active Substance: MOMETASONE FUROATE
     Dosage: ONCE DAILY
     Dates: start: 20210626
  2. ASMANEX [Suspect]
     Active Substance: MOMETASONE FUROATE
     Indication: ASTHMA
     Dosage: ONCE DAILY
     Dates: start: 20210610, end: 20210625
  3. SINGULAIR [Concomitant]
     Active Substance: MONTELUKAST SODIUM
     Dosage: UNK
  4. PROAIR HFA [Concomitant]
     Active Substance: ALBUTEROL SULFATE
     Dosage: UNK
  5. ASMANEX [Suspect]
     Active Substance: MOMETASONE FUROATE
     Indication: ASTHMA
     Dosage: ONCE DAILY
     Dates: start: 2011
  6. IRBESARTAN. [Concomitant]
     Active Substance: IRBESARTAN
     Dosage: UNK

REACTIONS (4)
  - Feeling abnormal [Recovered/Resolved]
  - Device malfunction [Unknown]
  - Dyspnoea [Recovered/Resolved]
  - Poor quality device used [Unknown]

NARRATIVE: CASE EVENT DATE: 20210625
